FAERS Safety Report 4515030-9 (Version None)
Quarter: 2004Q4

REPORT INFORMATION
  Report Type: 
  Country: None (occurrence: None)
  Receive Date: 20041129
  Receipt Date: 20041129
  Transmission Date: 20050328
  Serious: Yes (Other)
  Sender: FDA-Public Use
  Company Number: None

PATIENT
  Age: 40 Year
  Sex: Female
  Weight: 102.0593 kg

DRUGS (8)
  1. DELSYM [Suspect]
     Indication: COUGH
     Dosage: 60MG/10ML  ONCE ORAL
     Route: 048
     Dates: start: 20041128, end: 20041128
  2. SEROQUEL [Suspect]
     Dosage: 300MG  ONCE ORAL
     Route: 048
     Dates: start: 20040101, end: 20041128
  3. LEVOTHYROXINE SODIUM [Concomitant]
  4. CELEXA [Concomitant]
  5. LIPITOR [Concomitant]
  6. CLONAZEPAM [Concomitant]
  7. SEROQUEL [Concomitant]
  8. ALCOHOL [Concomitant]

REACTIONS (6)
  - CONFUSIONAL STATE [None]
  - COUGH [None]
  - DIZZINESS [None]
  - NASOPHARYNGITIS [None]
  - NAUSEA [None]
  - SOMNOLENCE [None]
